FAERS Safety Report 9269551 (Version 1)
Quarter: 2013Q2

REPORT INFORMATION
  Report Type: Spontaneous
  Country: US (occurrence: US)
  Receive Date: 20130503
  Receipt Date: 20130503
  Transmission Date: 20140414
  Serious: Yes (Other)
  Sender: FDA-Public Use
  Company Number: US-ELI_LILLY_AND_COMPANY-US201304007747

PATIENT
  Sex: Female

DRUGS (2)
  1. CYMBALTA [Suspect]
     Indication: FIBROMYALGIA
     Dosage: 60 MG, QD
  2. CYMBALTA [Suspect]
     Dosage: 60 MG, EACH EVENING

REACTIONS (5)
  - Stomatitis [Unknown]
  - Stress [Unknown]
  - Sinusitis [Not Recovered/Not Resolved]
  - Abscess neck [Unknown]
  - Drug effect decreased [Unknown]
